FAERS Safety Report 4281823-9 (Version None)
Quarter: 2004Q1

REPORT INFORMATION
  Report Type: 
  Country: None (occurrence: None)
  Receive Date: 20040128
  Receipt Date: 20040114
  Transmission Date: 20041129
  Serious: Yes (Hospitalization)
  Sender: FDA-Public Use
  Company Number: A-CH2004-04284

PATIENT
  Age: 44 Year
  Sex: Male

DRUGS (7)
  1. TRACLEER [Suspect]
     Indication: PULMONARY HYPERTENSION
     Dosage: SEE IMAGE
     Route: 048
     Dates: start: 20031006, end: 20031130
  2. TRACLEER [Suspect]
     Indication: PULMONARY HYPERTENSION
     Dosage: SEE IMAGE
     Route: 048
     Dates: start: 20031104, end: 20031218
  3. BERAOROST (BERAPROST) [Concomitant]
  4. LASIX [Concomitant]
  5. MODAMIDE (AMILORIDE HYDROCHLORIDE) [Concomitant]
  6. LEXOMIL (BROMAZEPAM) [Concomitant]
  7. AMOXICILLIN TRIHYDRATE [Concomitant]

REACTIONS (9)
  - ASCITES [None]
  - BLOOD BILIRUBIN INCREASED [None]
  - BRONCHIAL INFECTION [None]
  - BUNDLE BRANCH BLOCK RIGHT [None]
  - CARDIOMEGALY [None]
  - MYALGIA [None]
  - RIGHT VENTRICULAR FAILURE [None]
  - SINUS TACHYCARDIA [None]
  - VASODILATATION [None]
